FAERS Safety Report 6130970-5 (Version None)
Quarter: 2009Q1

REPORT INFORMATION
  Report Type: 
  Country: None (occurrence: None)
  Receive Date: 20090323
  Receipt Date: 20090305
  Transmission Date: 20090719
  Serious: Yes (Hospitalization)
  Sender: FDA-Public Use
  Company Number: 187421ISR

PATIENT
  Age: 76 Year
  Sex: Male

DRUGS (6)
  1. BISOPROLOL FUMARATE [Suspect]
     Indication: HYPERTENSION
     Dosage: (0.5 MG), ORAL
     Route: 048
  2. ACETYLSALICYLATE LYSINE [Suspect]
     Dosage: 1 DOSAGE FORMS(300 MG, 1 IN 1 D), ORAL
     Route: 048
     Dates: end: 20080923
  3. FUROSEMIDE [Concomitant]
  4. NICORANDIL [Concomitant]
  5. SERETZDE [Concomitant]
  6. CLONAZEPAM [Concomitant]

REACTIONS (1)
  - ATRIOVENTRICULAR BLOCK COMPLETE [None]
